FAERS Safety Report 6055753-6 (Version None)
Quarter: 2009Q1

REPORT INFORMATION
  Report Type: 
  Country: None (occurrence: None)
  Receive Date: 20090126
  Receipt Date: 20090116
  Transmission Date: 20090719
  Serious: Yes (Other)
  Sender: FDA-Public Use
  Company Number: UKP09000015

PATIENT
  Age: 82 Year
  Sex: Female

DRUGS (6)
  1. ASACOL [Suspect]
     Indication: COLITIS ULCERATIVE
     Dosage: 800 MG, 3/DAY, ORAL
     Route: 048
  2. TRIMETHOPRIM [Suspect]
     Indication: URINARY TRACT INFECTION
     Dosage: 200 MG, ORAL
     Route: 048
  3. ASPIRIN [Concomitant]
  4. FLUVASTATIN [Concomitant]
  5. RAMIPRIL [Concomitant]
  6. TOLTERODINE TARTRATE [Concomitant]

REACTIONS (1)
  - NEUTROPENIC SEPSIS [None]
